FAERS Safety Report 4730741-8 (Version None)
Quarter: 2005Q3

REPORT INFORMATION
  Report Type: 
  Country: None (occurrence: None)
  Receive Date: 20050725
  Receipt Date: 20050222
  Transmission Date: 20060218
  Serious: No
  Sender: FDA-Public Use
  Company Number: USA050291544

PATIENT
  Age: 13 Year
  Sex: Male
  Weight: 59 kg

DRUGS (1)
  1. STRATTERA [Suspect]
     Indication: ATTENTION DEFICIT/HYPERACTIVITY DISORDER
     Dosage: 85 MG DAY
     Dates: start: 20040801

REACTIONS (4)
  - DYSPNOEA [None]
  - HEART RATE INCREASED [None]
  - LETHARGY [None]
  - SOMNOLENCE [None]
